FAERS Safety Report 10043251 (Version 2)
Quarter: 2014Q1

REPORT INFORMATION
  Report Type: Report from Study
  Country: CA (occurrence: CA)
  Receive Date: 20140328
  Receipt Date: 20140328
  Transmission Date: 20141002
  Serious: Yes (Death)
  Sender: FDA-Public Use
  Company Number: CA-UCBSA-104060

PATIENT
  Age: 77 Year
  Sex: Female

DRUGS (2)
  1. CIMZIA [Suspect]
     Indication: RHEUMATOID ARTHRITIS
     Dosage: CIMZIA THETRAPY ON HOLD, EXPIRY DATE: ??/JAN/2015
     Route: 058
     Dates: start: 20130520
  2. CIMZIA [Suspect]
     Indication: RHEUMATOID ARTHRITIS
     Route: 058
     Dates: start: 20130408, end: 20130506

REACTIONS (2)
  - Death [Fatal]
  - Cough [Recovering/Resolving]
